FAERS Safety Report 6666540-X (Version None)
Quarter: 2010Q2

REPORT INFORMATION
  Report Type: 
  Country: None (occurrence: None)
  Receive Date: 20100402
  Receipt Date: 20100331
  Transmission Date: 20101027
  Serious: Yes (Hospitalization)
  Sender: FDA-Public Use
  Company Number: GB-MERCK-1004GBR00005

PATIENT

DRUGS (1)
  1. CANCIDAS [Suspect]
     Route: 042

REACTIONS (2)
  - MALAISE [None]
  - RASH [None]
